FAERS Safety Report 14363071 (Version 1)
Quarter: 2018Q1

REPORT INFORMATION
  Report Type: Spontaneous
  Country: CN (occurrence: CN)
  Receive Date: 20180108
  Receipt Date: 20180108
  Transmission Date: 20180509
  Serious: Yes (Other)
  Sender: FDA-Public Use
  Company Number: CN-PFIZER INC-2018003681

PATIENT
  Age: 88 Year
  Sex: Male
  Weight: 70 kg

DRUGS (3)
  1. MEPEM [Suspect]
     Active Substance: MEROPENEM
     Indication: THERAPEUTIC PROCEDURE
     Dosage: 1 G, 3X/DAY
     Route: 041
     Dates: start: 20171017, end: 20171023
  2. DIFLUCAN [Suspect]
     Active Substance: FLUCONAZOLE
     Indication: THERAPEUTIC PROCEDURE
     Dosage: 0.2 G, 1X/DAY
     Route: 041
     Dates: start: 20171017, end: 20171023
  3. VANCOCIN [Suspect]
     Active Substance: VANCOMYCIN HYDROCHLORIDE
     Indication: THERAPEUTIC PROCEDURE
     Dosage: 0.5 G, 3X/DAY
     Route: 041
     Dates: start: 20171017, end: 20171023

REACTIONS (1)
  - Acute kidney injury [Recovering/Resolving]

NARRATIVE: CASE EVENT DATE: 20171023
